FAERS Safety Report 13449549 (Version 1)
Quarter: 2017Q2

REPORT INFORMATION
  Report Type: Spontaneous
  Country: RU (occurrence: RU)
  Receive Date: 20170417
  Receipt Date: 20170417
  Transmission Date: 20170830
  Serious: Yes (Other)
  Sender: FDA-Public Use
  Company Number: RU-PFIZER INC-2016520181

PATIENT
  Sex: Female

DRUGS (2)
  1. RELPAX [Suspect]
     Active Substance: ELETRIPTAN HYDROBROMIDE
     Indication: MIGRAINE
     Dosage: 40 MG, UNK
     Route: 064
     Dates: start: 2012, end: 201606
  2. RELPAX [Suspect]
     Active Substance: ELETRIPTAN HYDROBROMIDE
     Dosage: 20 MG, AS NEEDED (FOR EVERY MIGRAINE ATTACK)
     Route: 064
     Dates: start: 201606

REACTIONS (4)
  - Maternal exposure during pregnancy [Unknown]
  - Pyelocaliectasis [Not Recovered/Not Resolved]
  - Cystocele [Not Recovered/Not Resolved]
  - Kidney duplex [Not Recovered/Not Resolved]

NARRATIVE: CASE EVENT DATE: 201702
